FAERS Safety Report 8539619-5 (Version None)
Quarter: 2012Q3

REPORT INFORMATION
  Report Type: 
  Country: None (occurrence: None)
  Receive Date: 20120726
  Receipt Date: 20120725
  Transmission Date: 20120928
  Serious: Yes (Hospitalization, Other)
  Sender: FDA-Public Use
  Company Number: FR-PFIZER INC-2012173666

PATIENT
  Age: 78 Year
  Sex: Female

DRUGS (3)
  1. PREVISCAN [Concomitant]
     Dosage: UNK
  2. ALLOPURINOL [Concomitant]
     Indication: GOUT
     Dosage: UNK
  3. CORDARONE [Suspect]
     Indication: ATRIAL FIBRILLATION
     Dosage: 200 MG, DAILY
     Route: 048
     Dates: start: 20120301

REACTIONS (4)
  - INTERNATIONAL NORMALISED RATIO INCREASED [None]
  - INTERVERTEBRAL DISCITIS [None]
  - NEPHROPATHY [None]
  - HYPOTHYROIDISM [None]
